APPROVED DRUG PRODUCT: ANGIOMAX RTU
Active Ingredient: BIVALIRUDIN
Strength: 250MG/50ML (5MG/ML)
Dosage Form/Route: SOLUTION;INTRAVENOUS
Application: N211215 | Product #001
Applicant: MAIA PHARMACEUTICALS INC
Approved: Jul 25, 2019 | RLD: Yes | RS: Yes | Type: RX

PATENTS:
Patent 11903993 | Expires: May 20, 2039
Patent 12472224 | Expires: May 20, 2039
Patent 11918622 | Expires: May 20, 2039
Patent 11992514 | Expires: May 20, 2039